FAERS Safety Report 6891913-X (Version None)
Quarter: 2010Q3

REPORT INFORMATION
  Report Type: 
  Country: None (occurrence: None)
  Receive Date: 20100731
  Receipt Date: 20071120
  Transmission Date: 20110219
  Serious: Yes (Other)
  Sender: FDA-Public Use
  Company Number: US-PFIZER INC-2007098608

PATIENT
  Sex: Female
  Weight: 109 kg

DRUGS (1)
  1. NEURONTIN [Suspect]
     Indication: ARACHNOIDITIS
     Dates: end: 20071120

REACTIONS (3)
  - ANGIOEDEMA [None]
  - HYPERSENSITIVITY [None]
  - SWELLING [None]
